FAERS Safety Report 23629481 (Version 7)
Quarter: 2024Q4

REPORT INFORMATION
  Report Type: Report from Study
  Country: US (occurrence: US)
  Receive Date: 20240314
  Receipt Date: 20241224
  Transmission Date: 20250114
  Serious: Yes (Other)
  Sender: ABBVIE
  Company Number: US-ABBVIE-5676060

PATIENT
  Age: 75 Year
  Sex: Male
  Weight: 65.77 kg

DRUGS (5)
  1. VENCLEXTA [Suspect]
     Active Substance: VENETOCLAX
     Indication: Chronic lymphocytic leukaemia
     Dosage: LAST ADMINISTRATION DATE: 2023
     Route: 048
     Dates: start: 20230105
  2. VENCLEXTA [Suspect]
     Active Substance: VENETOCLAX
     Indication: Chronic lymphocytic leukaemia
     Route: 048
     Dates: start: 20230519
  3. VENCLEXTA [Suspect]
     Active Substance: VENETOCLAX
     Indication: Chronic lymphocytic leukaemia
     Route: 048
     Dates: start: 202301, end: 202301
  4. VENCLEXTA [Suspect]
     Active Substance: VENETOCLAX
     Indication: Chronic lymphocytic leukaemia
     Route: 048
     Dates: start: 202305, end: 202305
  5. VENCLEXTA [Suspect]
     Active Substance: VENETOCLAX
     Indication: Chronic lymphocytic leukaemia
     Route: 048
     Dates: start: 202305

REACTIONS (22)
  - Basal cell carcinoma [Not Recovered/Not Resolved]
  - Ephelides [Unknown]
  - Breath sounds abnormal [Unknown]
  - Feeling abnormal [Unknown]
  - Hair growth abnormal [Unknown]
  - Nail growth abnormal [Unknown]
  - Rales [Not Recovered/Not Resolved]
  - Pulmonary fibrosis [Not Recovered/Not Resolved]
  - Skin mass [Not Recovered/Not Resolved]
  - Anxiety [Not Recovered/Not Resolved]
  - Dental caries [Unknown]
  - Artificial crown procedure [Unknown]
  - Cancer pain [Not Recovered/Not Resolved]
  - Basal cell carcinoma [Recovering/Resolving]
  - Erythema [Not Recovered/Not Resolved]
  - Granuloma skin [Unknown]
  - Abnormal faeces [Unknown]
  - Facial operation [Unknown]
  - Skin odour abnormal [Unknown]
  - Breath odour [Unknown]
  - Headache [Unknown]
  - Irritability [Unknown]

NARRATIVE: CASE EVENT DATE: 20230201
